FAERS Safety Report 16160696 (Version 4)
Quarter: 2019Q2

REPORT INFORMATION
  Report Type: Report from Study
  Country: FR (occurrence: FR)
  Receive Date: 20190405
  Receipt Date: 20190524
  Transmission Date: 20190711
  Serious: Yes (Other)
  Sender: FDA-Public Use
  Company Number: PHHY2019FR041218

PATIENT
  Sex: Female
  Weight: 28 kg

DRUGS (8)
  1. LUXTURNA [Suspect]
     Active Substance: VORETIGENE NEPARVOVEC-RZYL
     Indication: RETINITIS PIGMENTOSA
     Dosage: ONCE
     Route: 050
     Dates: start: 20190206, end: 20190206
  2. IMIPENEM [Concomitant]
     Active Substance: IMIPENEM
     Indication: PROPHYLAXIS
     Dosage: 500 MG, UNK
     Route: 042
     Dates: start: 20190206, end: 20190206
  3. TOBRADEX [Concomitant]
     Active Substance: DEXAMETHASONE\TOBRAMYCIN
     Indication: PROPHYLAXIS
     Dosage: 1 DRP, FIVE TIMES PER DAY
     Route: 047
     Dates: start: 20190219, end: 20190222
  4. IMIPENEM [Concomitant]
     Active Substance: IMIPENEM
     Dosage: 500 MG, UNK
     Route: 042
     Dates: start: 20190213, end: 20190213
  5. PREDNISOLONE. [Suspect]
     Active Substance: PREDNISOLONE
     Dosage: 15 MG, UNK
     Route: 048
     Dates: start: 20190217, end: 20190226
  6. PREDNISONE. [Concomitant]
     Active Substance: PREDNISONE
     Indication: PROPHYLAXIS
     Dosage: 15 MG, UNK
     Route: 048
     Dates: start: 20190203
  7. LUXTURNA [Suspect]
     Active Substance: VORETIGENE NEPARVOVEC-RZYL
     Dosage: ONCE
     Route: 050
     Dates: start: 20190213, end: 20190213
  8. PREDNISOLONE. [Suspect]
     Active Substance: PREDNISOLONE
     Indication: PROPHYLAXIS
     Dosage: 30 MG, UNK
     Route: 048
     Dates: start: 20190203, end: 20190216

REACTIONS (4)
  - Cataract [Recovered/Resolved]
  - Intraocular pressure decreased [Recovered/Resolved]
  - Face oedema [Unknown]
  - Cataract [Recovered/Resolved]

NARRATIVE: CASE EVENT DATE: 20190207
